FAERS Safety Report 16328744 (Version 2)
Quarter: 2019Q2

REPORT INFORMATION
  Report Type: Report from Study
  Country: None (occurrence: US)
  Receive Date: 20190519
  Receipt Date: 20190617
  Transmission Date: 20190711
  Serious: Yes (Hospitalization, Other)
  Sender: FDA-Public Use
  Company Number: US-ABBVIE-19K-163-2785610-00

PATIENT
  Age: 72 Year
  Sex: Male
  Weight: 86.26 kg

DRUGS (5)
  1. HUMIRA [Suspect]
     Active Substance: ADALIMUMAB
     Indication: CROHN^S DISEASE
     Route: 058
     Dates: start: 2014
  2. MIRALAX [Concomitant]
     Active Substance: POLYETHYLENE GLYCOL 3350
     Indication: PRODUCT USED FOR UNKNOWN INDICATION
  3. SIMETHICONE (DIMETHICONE) [Concomitant]
     Active Substance: DIMETHICONE
     Indication: PRODUCT USED FOR UNKNOWN INDICATION
  4. CALCIUM WITH VITAMIN D [Concomitant]
     Active Substance: CALCIUM\VITAMIN D
     Indication: PRODUCT USED FOR UNKNOWN INDICATION
  5. 6-MP [Concomitant]
     Active Substance: MERCAPTOPURINE
     Indication: PRODUCT USED FOR UNKNOWN INDICATION

REACTIONS (8)
  - Small intestinal obstruction [Recovered/Resolved]
  - Muscle spasms [Unknown]
  - Infection [Unknown]
  - Cervical spinal stenosis [Unknown]
  - Sciatica [Recovered/Resolved]
  - Diarrhoea [Unknown]
  - Postoperative ileus [Recovered/Resolved]
  - Abdominal distension [Unknown]

NARRATIVE: CASE EVENT DATE: 2018
